FAERS Safety Report 7665446-7 (Version None)
Quarter: 2011Q3

REPORT INFORMATION
  Report Type: 
  Country: None (occurrence: None)
  Receive Date: 20110806
  Receipt Date: 20110322
  Transmission Date: 20111222
  Serious: No
  Sender: FDA-Public Use
  Company Number: US-ABBOTT-11P-163-0713472-00

PATIENT
  Sex: Female
  Weight: 72.64 kg

DRUGS (2)
  1. UNKNOWN THYROID MEDICATION [Suspect]
     Indication: THYROID DISORDER
     Dates: start: 20110301
  2. NIASPAN [Suspect]
     Indication: PRODUCT USED FOR UNKNOWN INDICATION
     Dosage: AT BEDTIME
     Dates: start: 20100101

REACTIONS (5)
  - ERYTHEMA [None]
  - RASH ERYTHEMATOUS [None]
  - FLUSHING [None]
  - HEADACHE [None]
  - ALLERGIC SINUSITIS [None]
